FAERS Safety Report 4520637-9 (Version None)
Quarter: 2004Q4

REPORT INFORMATION
  Report Type: 
  Country: None (occurrence: None)
  Receive Date: 20041203
  Receipt Date: 20041129
  Transmission Date: 20050328
  Serious: Yes (Hospitalization)
  Sender: FDA-Public Use
  Company Number: TPA2004A01489

PATIENT
  Sex: Female

DRUGS (11)
  1. ACTOS [Suspect]
     Indication: DIABETES MELLITUS
     Dosage: PER ORAL
     Route: 048
  2. LANOXIN [Concomitant]
  3. EVISTA [Concomitant]
  4. ASPIRIN 9ACETYLSALICYLIC ACID) [Concomitant]
  5. PLAVIX [Concomitant]
  6. LIPITOR 9ATORVASTATIN0 [Concomitant]
  7. QUINDINE (QUINDINE) [Concomitant]
  8. DETROL (TOLTERADINE L-TARTRATE0 [Concomitant]
  9. (MULTIVITAMINS0 [Concomitant]
  10. IRON (IRON0 [Concomitant]
  11. UNIVA (MOEXIPRIL HYDROCHLORIDE) [Concomitant]

REACTIONS (5)
  - AMNESIA [None]
  - APHASIA [None]
  - CEREBROVASCULAR ACCIDENT [None]
  - MOBILITY DECREASED [None]
  - TRANSIENT ISCHAEMIC ATTACK [None]
